FAERS Safety Report 11066496 (Version 2)
Quarter: 2015Q2

REPORT INFORMATION
  Report Type: Spontaneous
  Country: US (occurrence: US)
  Receive Date: 20150425
  Receipt Date: 20150525
  Transmission Date: 20150821
  Serious: Yes (Other)
  Sender: FDA-Public Use
  Company Number: US-JNJFOC-20130903786

PATIENT
  Age: 54 Year
  Sex: Male
  Weight: 103.2 kg

DRUGS (3)
  1. REMICADE [Suspect]
     Active Substance: INFLIXIMAB
     Indication: PSORIATIC ARTHROPATHY
     Route: 042
     Dates: start: 20130815
  2. REMICADE [Suspect]
     Active Substance: INFLIXIMAB
     Indication: PSORIATIC ARTHROPATHY
     Dosage: WITH NORMAL SALINE 250 ML
     Route: 042
     Dates: start: 2013
  3. REMICADE [Suspect]
     Active Substance: INFLIXIMAB
     Indication: PSORIATIC ARTHROPATHY
     Dosage: THE PATIENT WAS ON AND OFF WITH THE TREATMENT SINCE 2005
     Route: 042
     Dates: start: 2005

REACTIONS (6)
  - Dyspnoea [Recovering/Resolving]
  - Nausea [Recovering/Resolving]
  - Heart rate increased [Recovering/Resolving]
  - Infusion related reaction [Recovering/Resolving]
  - Flushing [Recovering/Resolving]
  - Hypotension [Recovering/Resolving]

NARRATIVE: CASE EVENT DATE: 2013
